FAERS Safety Report 8079867-4 (Version None)
Quarter: 2012Q1

REPORT INFORMATION
  Report Type: 
  Country: None (occurrence: None)
  Receive Date: 20120128
  Receipt Date: 20110831
  Transmission Date: 20120608
  Serious: No
  Sender: FDA-Public Use
  Company Number: US-ABBOTT-11P-163-0850806-00

PATIENT
  Age: 64 Year
  Sex: Female

DRUGS (5)
  1. HUMIRA [Suspect]
     Indication: CROHN'S DISEASE
     Dates: start: 20110624
  2. IMODIUM [Concomitant]
     Indication: DIARRHOEA
  3. MULTI-VITAMIN [Concomitant]
     Indication: PRODUCT USED FOR UNKNOWN INDICATION
     Dosage: DAILY
  4. TYLENOL PM [Concomitant]
     Indication: INSOMNIA
  5. LIALDA [Concomitant]
     Indication: CROHN'S DISEASE

REACTIONS (3)
  - ANAL FISSURE [None]
  - SKIN DISORDER [None]
  - SECRETION DISCHARGE [None]
